FAERS Safety Report 6976643-8 (Version None)
Quarter: 2010Q3

REPORT INFORMATION
  Report Type: 
  Country: None (occurrence: None)
  Receive Date: 20100910
  Receipt Date: 20090505
  Transmission Date: 20110219
  Serious: No
  Sender: FDA-Public Use
  Company Number: US-WYE-H09229109

PATIENT
  Age: 25 Year
  Sex: Female

DRUGS (5)
  1. PRISTIQ [Suspect]
     Dosage: UNKNOWN
     Route: 048
  2. ABILIFY [Concomitant]
  3. DESYREL [Concomitant]
  4. KLONOPIN [Concomitant]
  5. WELLBUTRIN [Concomitant]

REACTIONS (1)
  - DRUG SCREEN POSITIVE [None]
